FAERS Safety Report 24373527 (Version 1)
Quarter: 2024Q3

REPORT INFORMATION
  Report Type: Spontaneous
  Country: US (occurrence: US)
  Receive Date: 20240927
  Receipt Date: 20240927
  Transmission Date: 20241017
  Serious: No
  Sender: VIVUS
  Company Number: US-VIVUS LLC-2023V1001044

PATIENT
  Sex: Female
  Weight: 92.616 kg

DRUGS (3)
  1. QSYMIA [Suspect]
     Active Substance: PHENTERMINE HYDROCHLORIDE\TOPIRAMATE
     Indication: Weight decreased
     Route: 048
  2. QSYMIA [Suspect]
     Active Substance: PHENTERMINE HYDROCHLORIDE\TOPIRAMATE
     Indication: Weight decreased
     Route: 048
     Dates: end: 202307
  3. QSYMIA [Suspect]
     Active Substance: PHENTERMINE HYDROCHLORIDE\TOPIRAMATE
     Indication: Weight decreased
     Route: 048
     Dates: start: 202305

REACTIONS (9)
  - Intrusive thoughts [Unknown]
  - Aggression [Unknown]
  - Impulse-control disorder [Unknown]
  - Paraesthesia [Unknown]
  - Paraesthesia oral [Unknown]
  - Vision blurred [Unknown]
  - Aphasia [Unknown]
  - Confusional state [Unknown]
  - Mood swings [Unknown]
